FAERS Safety Report 14008240 (Version 1)
Quarter: 2017Q3

REPORT INFORMATION
  Report Type: Spontaneous
  Country: US (occurrence: None)
  Receive Date: 20170925
  Receipt Date: 20170925
  Transmission Date: 20171128
  Serious: Yes (Hospitalization)
  Sender: FDA-Public Use
  Company Number: None

PATIENT
  Age: 56 Year
  Sex: Male

DRUGS (17)
  1. PANTOPRAZOLE [Concomitant]
     Active Substance: PANTOPRAZOLE
  2. ASPIRIN. [Concomitant]
     Active Substance: ASPIRIN
  3. BUPROPION. [Concomitant]
     Active Substance: BUPROPION
  4. OTEZLA [Concomitant]
     Active Substance: APREMILAST
  5. ORENCIA [Suspect]
     Active Substance: ABATACEPT
     Indication: PSORIATIC ARTHROPATHY
     Route: 058
     Dates: start: 20170808
  6. BRILINTA [Concomitant]
     Active Substance: TICAGRELOR
  7. AMOXICILLIN. [Concomitant]
     Active Substance: AMOXICILLIN
  8. RAMIPRIL. [Concomitant]
     Active Substance: RAMIPRIL
  9. BUPROPION HCL [Concomitant]
     Active Substance: BUPROPION HYDROCHLORIDE
  10. LEFLUNOMIDE. [Concomitant]
     Active Substance: LEFLUNOMIDE
  11. MULTIVITAMIN [Concomitant]
     Active Substance: VITAMINS
  12. AZITHROMYCIN ANHYDROUS. [Concomitant]
     Active Substance: AZITHROMYCIN ANHYDROUS
  13. AMLODIPINE [Concomitant]
     Active Substance: AMLODIPINE BESYLATE
  14. LEVOFLOXACIN. [Concomitant]
     Active Substance: LEVOFLOXACIN
  15. ATORVASTATIN [Concomitant]
     Active Substance: ATORVASTATIN
  16. PREDNISONE. [Concomitant]
     Active Substance: PREDNISONE
  17. RANEXA [Concomitant]
     Active Substance: RANOLAZINE

REACTIONS (6)
  - Arthropathy [None]
  - Joint swelling [None]
  - Pain [None]
  - Condition aggravated [None]
  - Infection [None]
  - Musculoskeletal stiffness [None]

NARRATIVE: CASE EVENT DATE: 20170908
